FAERS Safety Report 22270643 (Version 1)
Quarter: 2023Q2

REPORT INFORMATION
  Report Type: Spontaneous
  Country: US (occurrence: None)
  Receive Date: 20230430
  Receipt Date: 20230430
  Transmission Date: 20230722
  Serious: Yes (Other)
  Sender: FDA-Public Use
  Company Number: None

PATIENT
  Age: 36 Year
  Sex: Female
  Weight: 51.3 kg

DRUGS (10)
  1. FLUOXETINE [Suspect]
     Active Substance: FLUOXETINE HYDROCHLORIDE
     Indication: Major depression
     Route: 048
     Dates: start: 20230330, end: 20230402
  2. Nifedipine XR [Concomitant]
  3. CLONIDINE [Concomitant]
     Active Substance: CLONIDINE
  4. CLONAZEPAM [Concomitant]
     Active Substance: CLONAZEPAM
  5. PREDNISONE [Concomitant]
     Active Substance: PREDNISONE
  6. NORCO [Concomitant]
     Active Substance: ACETAMINOPHEN\HYDROCODONE BITARTRATE
  7. FLEXERIL [Concomitant]
     Active Substance: CYCLOBENZAPRINE HYDROCHLORIDE
  8. XANAX [Concomitant]
     Active Substance: ALPRAZOLAM
  9. VITAMINS [Concomitant]
     Active Substance: VITAMINS
  10. ^Hair, skin, and nails supplement [Concomitant]

REACTIONS (2)
  - Dystonia [None]
  - Spasmodic dysphonia [None]

NARRATIVE: CASE EVENT DATE: 20230401
